FAERS Safety Report 7917292-4 (Version None)
Quarter: 2011Q4

REPORT INFORMATION
  Report Type: 
  Country: None (occurrence: None)
  Receive Date: 20111116
  Receipt Date: 20111108
  Transmission Date: 20120403
  Serious: Yes (Other)
  Sender: FDA-Public Use
  Company Number: PHEH2011US07499

PATIENT
  Age: 58 Year
  Sex: Female
  Weight: 72.562 kg

DRUGS (27)
  1. LASIX [Concomitant]
     Dosage: 40 MG, PRN
     Dates: start: 20110523
  2. POTASSIUM CHLORIDE [Concomitant]
     Dosage: 20 MEQ, QOD
     Dates: start: 20110523
  3. CITALOPRAM HYDROBROMIDE [Concomitant]
     Dosage: 40 MG, QD
     Dates: start: 20110523
  4. CITALOPRAM HYDROBROMIDE [Concomitant]
     Dosage: 40 MG, QD
     Dates: start: 20110616
  5. MIRTAZAPINE [Concomitant]
     Dosage: 45 MG, QHS
     Dates: start: 20110616
  6. ALPRAZOLAM [Concomitant]
     Dosage: 1 MG, QHS
     Dates: start: 20110523
  7. ALPRAZOLAM [Concomitant]
     Dosage: 1 MG, QHS
     Dates: start: 20110616
  8. NORCO [Concomitant]
  9. RAMIPRIL [Concomitant]
     Dosage: 5 MG, QD
     Dates: start: 20110616
  10. PREDNISONE [Concomitant]
     Dosage: 10 MG, QOD
     Dates: start: 20110523
  11. MIRTAZAPINE [Concomitant]
     Dosage: 45 MG, QHS
     Dates: start: 20110523
  12. POTASSIUM CHLORIDE [Concomitant]
     Dosage: 20 MEQ, QOD
     Dates: start: 20110616
  13. OMEPRAZOLE [Concomitant]
     Dosage: 20 MG, QOD
     Dates: start: 20110523
  14. OMEPRAZOLE [Concomitant]
     Dosage: 20 MG, QOD
     Dates: start: 20110616
  15. SPIRIVA [Concomitant]
  16. VITAMIN E [Concomitant]
  17. ADVAIR DISKUS 100/50 [Concomitant]
  18. TOBI [Suspect]
     Dosage: 300 MG, BID,TWICE A DAY FOR 28 DAYS THEN 28 DAYS OFF.
     Dates: start: 20111012, end: 20111019
  19. LASIX [Concomitant]
     Dosage: 40 MG, PRN
     Dates: start: 20110616
  20. RAMIPRIL [Concomitant]
     Dosage: 5 MG, QD
     Dates: start: 20110523
  21. FENTANYL [Concomitant]
     Dosage: 100 UG, Q3D
     Dates: start: 20110616
  22. NYSTATIN [Concomitant]
     Dates: start: 20110523, end: 20110616
  23. TOBI [Suspect]
     Indication: PSEUDOMONAS INFECTION
     Dosage: 300 MG, BID, 28 DAYS ON AND THEN 28 DAYS OFF
     Dates: start: 20110414
  24. FENTANYL [Concomitant]
     Dosage: 100 UG, Q3D
     Dates: start: 20110523
  25. ALBUTEROL [Concomitant]
  26. PREDNISONE [Concomitant]
     Dosage: 10 MG, QOD
     Dates: start: 20110616
  27. COUMADIN [Concomitant]

REACTIONS (6)
  - EAR DISORDER [None]
  - TREMOR [None]
  - FEELING JITTERY [None]
  - HEADACHE [None]
  - URINE OUTPUT INCREASED [None]
  - INSOMNIA [None]
